FAERS Safety Report 5222047-8 (Version None)
Quarter: 2007Q1

REPORT INFORMATION
  Report Type: 
  Country: None (occurrence: None)
  Receive Date: 20070129
  Receipt Date: 20060425
  Transmission Date: 20070707
  Serious: No
  Sender: FDA-Public Use
  Company Number: US-GLAXOSMITHKLINE-A0602944A

PATIENT
  Age: 55 Year
  Sex: Female

DRUGS (5)
  1. WELLBUTRIN [Suspect]
     Indication: DRUG USE FOR UNKNOWN INDICATION
     Route: 048
  2. NICORETTE [Suspect]
     Dosage: 4MG SEE DOSAGE TEXT
     Route: 048
  3. NICORETTE (MINT) [Suspect]
     Dosage: 4MG SEE DOSAGE TEXT
     Route: 048
  4. NICOTINE POLACRILEX [Suspect]
     Route: 048
  5. NICOTINE [Suspect]
     Route: 062
     Dates: start: 20020101

REACTIONS (4)
  - CONSTIPATION [None]
  - GINGIVAL BLEEDING [None]
  - STOMATITIS [None]
  - VOMITING [None]
